FAERS Safety Report 9462426 (Version 2)
Quarter: 2015Q2

REPORT INFORMATION
  Report Type: Spontaneous
  Country: SI (occurrence: SI)
  Receive Date: 20130816
  Receipt Date: 20150520
  Transmission Date: 20150821
  Serious: Yes (Death, Other)
  Sender: FDA-Public Use
  Company Number: PHHY2013SI087388

PATIENT
  Age: 35 Year
  Sex: Female

DRUGS (16)
  1. IRINOTECAN [Suspect]
     Active Substance: IRINOTECAN
     Indication: RECTAL CANCER
     Dosage: 250 MG/M2, DAY 1
     Route: 065
     Dates: start: 200801
  2. CETUXIMAB [Suspect]
     Active Substance: CETUXIMAB
     Dosage: 500 MG/M2, QW2
     Route: 065
     Dates: start: 200906
  3. 5 FLUORUORACILO [Concomitant]
     Indication: RECTAL CANCER
     Dosage: 750 MG, ONCE/SINGLE
     Route: 042
  4. OXALIPLATIN. [Suspect]
     Active Substance: OXALIPLATIN
     Indication: RECTAL CANCER
     Dosage: 130 MG/M2, DAY 1
     Route: 065
     Dates: start: 200901
  5. CAPECITABINE. [Suspect]
     Active Substance: CAPECITABINE
     Indication: METASTASES TO LIVER
     Dosage: 1000 MG/M2, 1ST-14TH DAY
     Route: 065
     Dates: start: 200901
  6. CETUXIMAB [Suspect]
     Active Substance: CETUXIMAB
     Dosage: 250 MG/M2, 1ST, 8 THAND 14 TH DAY
     Route: 065
     Dates: start: 200901
  7. CAPECITABINE. [Suspect]
     Active Substance: CAPECITABINE
     Indication: RECTAL CANCER
     Dosage: 1000 MG/M2, 1ST-14TH DAY
     Route: 065
     Dates: start: 2008
  8. CETUXIMAB [Suspect]
     Active Substance: CETUXIMAB
     Dosage: 500 MG/M2, QW2
     Route: 065
     Dates: start: 2008
  9. BEVACIZUMAB [Suspect]
     Active Substance: BEVACIZUMAB
     Indication: RECTAL CANCER
     Dosage: 7.5 MG/KG, DAY 1
     Route: 065
     Dates: start: 2010
  10. IRINOTECAN [Suspect]
     Active Substance: IRINOTECAN
     Indication: METASTASES TO LIVER
     Dosage: 250 MG/M2, DAY 1
     Route: 065
     Dates: start: 2010
  11. CAPECITABINE. [Suspect]
     Active Substance: CAPECITABINE
     Dosage: 1000 MG/M2, 1ST-14TH DAY
     Route: 065
     Dates: start: 2010
  12. OXALIPLATIN. [Suspect]
     Active Substance: OXALIPLATIN
     Indication: METASTASES TO LIVER
     Dosage: 300 MG, ONCE/SINGLE
     Route: 033
     Dates: start: 201105
  13. CETUXIMAB [Suspect]
     Active Substance: CETUXIMAB
     Indication: RECTAL CANCER
     Dosage: 400 MG/M2, DAY 1, CYCLE 1
     Route: 065
     Dates: start: 2008
  14. 5 FLUORUORACILO [Concomitant]
     Indication: METASTASES TO LIVER
  15. CETUXIMAB [Suspect]
     Active Substance: CETUXIMAB
     Indication: METASTASES TO LIVER
     Dosage: 250 MG/M2, WEEKLY
     Route: 065
     Dates: start: 2008
  16. BEVACIZUMAB [Suspect]
     Active Substance: BEVACIZUMAB
     Indication: METASTASES TO LIVER
     Dosage: 7.5 MG/KG, QW3
     Route: 065
     Dates: start: 2010

REACTIONS (7)
  - Paraesthesia [Recovered/Resolved]
  - Metastases to bone [Fatal]
  - Metastases to liver [Fatal]
  - Metastases to lung [Fatal]
  - Palmar-plantar erythrodysaesthesia syndrome [Unknown]
  - Rectal cancer recurrent [Fatal]
  - Acne [Unknown]

NARRATIVE: CASE EVENT DATE: 201208
